FAERS Safety Report 18397617 (Version 1)
Quarter: 2020Q4

REPORT INFORMATION
  Report Type: Spontaneous
  Country: GB (occurrence: GB)
  Receive Date: 20201019
  Receipt Date: 20201019
  Transmission Date: 20210114
  Serious: Yes (Other)
  Sender: FDA-Public Use
  Company Number: GB-SHIRE-GB202033647

PATIENT

DRUGS (2)
  1. HUMIRA [Suspect]
     Active Substance: ADALIMUMAB
     Indication: CROHN^S DISEASE
     Route: 058
     Dates: start: 2018
  2. 476 (MESALAZINE/MESALAMINE) [Suspect]
     Active Substance: MESALAMINE
     Indication: PRODUCT USED FOR UNKNOWN INDICATION
     Dosage: UNK UNK, UNKNOWN
     Route: 065

REACTIONS (14)
  - Crohn^s disease [Unknown]
  - Night sweats [Unknown]
  - Stress [Unknown]
  - Injection site bruising [Unknown]
  - Renal function test abnormal [Unknown]
  - Anxiety [Recovered/Resolved]
  - Fatigue [Unknown]
  - Mouth ulceration [Unknown]
  - Headache [Unknown]
  - Exposure to SARS-CoV-2 [Unknown]
  - Nasopharyngitis [Unknown]
  - Gastrointestinal sounds abnormal [Unknown]
  - Feeling hot [Unknown]
  - Therapeutic response shortened [Unknown]

NARRATIVE: CASE EVENT DATE: 2020
